FAERS Safety Report 5851772-0 (Version None)
Quarter: 2008Q3

REPORT INFORMATION
  Report Type: 
  Country: None (occurrence: None)
  Receive Date: 20080820
  Receipt Date: 20080811
  Transmission Date: 20090109
  Serious: Yes (Hospitalization)
  Sender: FDA-Public Use
  Company Number: US-ABBOTT-08P-163-0469865-00

PATIENT
  Sex: Female
  Weight: 38.59 kg

DRUGS (6)
  1. HUMIRA [Suspect]
     Indication: CROHN'S DISEASE
  2. HUMIRA [Suspect]
  3. HUMIRA [Suspect]
     Indication: CROHN'S DISEASE
     Dosage: 80MG ONCE
     Route: 058
     Dates: start: 20050401
  4. HUMIRA [Suspect]
     Route: 058
     Dates: start: 20080701
  5. AZATHIOPRINE [Concomitant]
     Indication: CROHN'S DISEASE
  6. ENDOCORT [Concomitant]
     Indication: CROHN'S DISEASE

REACTIONS (3)
  - ILEOSTOMY [None]
  - INJECTION SITE HAEMATOMA [None]
  - INJECTION SITE PAIN [None]
